FAERS Safety Report 6837965-4 (Version None)
Quarter: 2010Q3

REPORT INFORMATION
  Report Type: 
  Country: None (occurrence: None)
  Receive Date: 20100713
  Receipt Date: 20070530
  Transmission Date: 20110219
  Serious: No
  Sender: FDA-Public Use
  Company Number: US-PFIZER INC-2007042853

PATIENT
  Sex: Female
  Weight: 83.9 kg

DRUGS (5)
  1. CHANTIX [Suspect]
     Indication: SMOKING CESSATION THERAPY
     Dates: start: 20070519
  2. DRUG, UNSPECIFIED [Concomitant]
  3. BENICAR [Concomitant]
  4. VESICARE [Concomitant]
  5. VITAMINS [Concomitant]

REACTIONS (2)
  - FATIGUE [None]
  - HEADACHE [None]
